FAERS Safety Report 4837544-4 (Version None)
Quarter: 2005Q4

REPORT INFORMATION
  Report Type: 
  Country: None (occurrence: None)
  Receive Date: 20051123
  Receipt Date: 20051123
  Transmission Date: 20060501
  Serious: Yes (Hospitalization)
  Sender: FDA-Public Use
  Company Number: None

PATIENT
  Age: 58 Year
  Sex: Male
  Weight: 155.1 kg

DRUGS (7)
  1. WARFARIN SODIUM [Suspect]
     Indication: PULMONARY EMBOLISM
     Dosage: ORAL
     Route: 048
  2. OMEPRAZOLE [Concomitant]
  3. FERROUS SO4 [Concomitant]
  4. SIMVASTATIN [Concomitant]
  5. ALBUTEROL [Concomitant]
  6. ATENOLOL [Concomitant]
  7. MULTI-VITAMIN [Concomitant]

REACTIONS (1)
  - HAEMATURIA [None]
